FAERS Safety Report 9185486 (Version 1)
Quarter: 2012Q4

REPORT INFORMATION
  Report Type: 
  Country: CA (occurrence: CA)
  Receive Date: 20121101
  Receipt Date: 20121101
  Transmission Date: 20130627
  Serious: Yes (Other)
  Sender: FDA-Public Use
  Company Number: CA-PFIZER INC-2012269138

PATIENT
  Sex: Male

DRUGS (1)
  1. CHAMPIX [Suspect]
     Dosage: UNK
     Dates: start: 201204, end: 2012

REACTIONS (6)
  - Myocardial infarction [Unknown]
  - Cerebrovascular accident [Unknown]
  - Convulsion [Unknown]
  - Brain neoplasm [Unknown]
  - Nausea [Unknown]
  - Headache [Unknown]
